FAERS Safety Report 15552229 (Version 1)
Quarter: 2018Q4

REPORT INFORMATION
  Report Type: Report from Study
  Country: ES (occurrence: ES)
  Receive Date: 20181025
  Receipt Date: 20181025
  Transmission Date: 20190205
  Serious: Yes (Hospitalization)
  Sender: FDA-Public Use
  Company Number: ES-MYLANLABS-2018M1077870

PATIENT
  Age: 66 Year
  Sex: Male

DRUGS (1)
  1. AZATHIOPRINE. [Suspect]
     Active Substance: AZATHIOPRINE
     Indication: CROHN^S DISEASE
     Route: 065
     Dates: start: 2001

REACTIONS (4)
  - Diffuse large B-cell lymphoma [Unknown]
  - Haemophagocytic lymphohistiocytosis [Unknown]
  - Renal failure [Unknown]
  - Loss of consciousness [Unknown]
